FAERS Safety Report 23417586 (Version 1)
Quarter: 2024Q1

REPORT INFORMATION
  Report Type: Spontaneous
  Country: US (occurrence: US)
  Receive Date: 20240118
  Receipt Date: 20240118
  Transmission Date: 20240410
  Serious: No
  Sender: FDA-Public Use
  Company Number: US-SK LIFE SCIENCE, INC-SKPVG-2023-001080

PATIENT

DRUGS (4)
  1. XCOPRI [Suspect]
     Active Substance: CENOBAMATE
     Indication: Seizure
     Dosage: 12.5 MILLIGRAM
     Route: 065
     Dates: start: 202306, end: 20230630
  2. VIMPAT [Concomitant]
     Active Substance: LACOSAMIDE
     Indication: Seizure
     Dosage: 150 MILLIGRAM, BID
     Route: 065
  3. VIMPAT [Concomitant]
     Active Substance: LACOSAMIDE
     Dosage: 200 MILLIGRAM, BID
     Route: 065
  4. BRIVIACT [Concomitant]
     Active Substance: BRIVARACETAM
     Indication: Seizure
     Dosage: UNK
     Route: 065

REACTIONS (4)
  - Focal dyscognitive seizures [Recovering/Resolving]
  - Ataxia [Recovering/Resolving]
  - Confusional state [Recovering/Resolving]
  - Balance disorder [Recovering/Resolving]
